FAERS Safety Report 18725866 (Version 1)
Quarter: 2021Q1

REPORT INFORMATION
  Report Type: Spontaneous
  Country: US (occurrence: US)
  Receive Date: 20210111
  Receipt Date: 20210111
  Transmission Date: 20210419
  Serious: Yes (Other)
  Sender: FDA-Public Use
  Company Number: US-LUPIN PHARMACEUTICALS INC.-2020-11766

PATIENT
  Sex: Female

DRUGS (3)
  1. METHIMAZOLE. [Concomitant]
     Active Substance: METHIMAZOLE
     Indication: GOITRE
     Dosage: UNK
     Route: 065
  2. METHIMAZOLE. [Concomitant]
     Active Substance: METHIMAZOLE
     Indication: HYPERTHYROIDISM
  3. LEVOTHYROXINE. [Suspect]
     Active Substance: LEVOTHYROXINE
     Indication: BLOOD THYROID STIMULATING HORMONE ABNORMAL
     Dosage: UNK
     Route: 065

REACTIONS (1)
  - Hyperthyroidism [Unknown]
